FAERS Safety Report 9019561 (Version 1)
Quarter: 2013Q1

REPORT INFORMATION
  Report Type: Spontaneous
  Country: FI (occurrence: FI)
  Receive Date: 20130118
  Receipt Date: 20130118
  Transmission Date: 20140127
  Serious: Yes (Hospitalization, Other)
  Sender: FDA-Public Use
  Company Number: FI-SANOFI-AVENTIS-2013SA002723

PATIENT
  Age: 83 Year
  Sex: Female
  Weight: 75 kg

DRUGS (6)
  1. ARAVA [Suspect]
     Indication: PRODUCT USED FOR UNKNOWN INDICATION
     Route: 065
     Dates: start: 20090209
  2. RITUXIMAB [Suspect]
     Indication: RHEUMATOID ARTHRITIS
     Route: 042
     Dates: start: 20090209
  3. PREDNISOLON [Concomitant]
  4. SALAZOPYRIN [Concomitant]
  5. OXIKLORIN [Concomitant]
  6. IMUREL [Concomitant]

REACTIONS (9)
  - Chest pain [Unknown]
  - Atrial fibrillation [Unknown]
  - Spinal column stenosis [Unknown]
  - Diaphragmatic hernia [Unknown]
  - Cholecystitis [Unknown]
  - Spinal osteoarthritis [Unknown]
  - Leukopenia [Unknown]
  - Diarrhoea [Unknown]
  - Gastroenteritis [Unknown]
